FAERS Safety Report 8801580 (Version 3)
Quarter: 2012Q4

REPORT INFORMATION
  Report Type: 
  Country: US (occurrence: US)
  Receive Date: 20120921
  Receipt Date: 20121217
  Transmission Date: 20130627
  Serious: Yes (Other)
  Sender: FDA-Public Use
  Company Number: US-ELI_LILLY_AND_COMPANY-US201102003876

PATIENT
  Sex: Female
  Weight: 60.96 kg

DRUGS (3)
  1. FORTEO [Suspect]
     Indication: OSTEOPOROSIS
     Dosage: 20 ug, qd
     Route: 058
     Dates: start: 2010
  2. FORTEO [Suspect]
     Dosage: 20 ug, qd
     Route: 058
     Dates: start: 20110118
  3. FORTEO [Suspect]
     Dosage: 20 ug, qd
     Route: 058
     Dates: start: 201209

REACTIONS (10)
  - Compression fracture [Unknown]
  - Pain [Unknown]
  - Muscle spasms [Unknown]
  - Insomnia [Unknown]
  - Gastric disorder [Unknown]
  - Myalgia [Unknown]
  - Arthralgia [Unknown]
  - Vitamin D decreased [Unknown]
  - Tooth disorder [Unknown]
  - Fracture [Unknown]
